FAERS Safety Report 9190661 (Version 1)
Quarter: 2013Q1

REPORT INFORMATION
  Report Type: Spontaneous
  Country: DE (occurrence: DE)
  Receive Date: 20130326
  Receipt Date: 20130326
  Transmission Date: 20140127
  Serious: Yes (Disabling, Other)
  Sender: FDA-Public Use
  Company Number: DE-ROCHE-1198228

PATIENT
  Sex: Female

DRUGS (5)
  1. XELODA [Suspect]
     Indication: BREAST CANCER
     Dosage: ON DAYS 1-14 EVERY 3 WEEKS
     Route: 048
     Dates: start: 20130212
  2. DOCETAXEL [Concomitant]
     Indication: BREAST CANCER METASTATIC
     Dosage: EVERY 3 WEEKS
     Route: 042
     Dates: start: 20130212
  3. DEXAMETASON [Concomitant]
     Route: 048
     Dates: start: 20130211
  4. GRANISETRON [Concomitant]
     Route: 048
     Dates: start: 20130212
  5. GRANISETRON [Concomitant]
     Route: 042
     Dates: start: 20130212

REACTIONS (10)
  - Blood creatinine increased [Not Recovered/Not Resolved]
  - Rash [Recovered/Resolved]
  - Diarrhoea [Unknown]
  - Asthenia [Recovered/Resolved with Sequelae]
  - C-reactive protein increased [Not Recovered/Not Resolved]
  - Decreased appetite [Recovered/Resolved with Sequelae]
  - Urinary tract infection [Recovering/Resolving]
  - Metastases to peritoneum [Unknown]
  - Renal disorder [Recovering/Resolving]
  - Urosepsis [Recovering/Resolving]
